FAERS Safety Report 8872809 (Version 2)
Quarter: 2012Q4

REPORT INFORMATION
  Report Type: 
  Country: US (occurrence: US)
  Receive Date: 20121029
  Receipt Date: 20121212
  Transmission Date: 20130627
  Serious: Yes (Other)
  Sender: FDA-Public Use
  Company Number: US-PFIZER INC-2012268081

PATIENT
  Age: 57 Year
  Sex: Female
  Weight: 62.59 kg

DRUGS (2)
  1. DILANTIN [Suspect]
     Indication: EPILEPSY
     Dosage: 100 mg, daily
  2. PHENOBARBITONE [Concomitant]
     Indication: EPILEPSY
     Dosage: 97.8 mg, 1x/day

REACTIONS (1)
  - Systemic lupus erythematosus [Not Recovered/Not Resolved]
